FAERS Safety Report 11158654 (Version 4)
Quarter: 2015Q3

REPORT INFORMATION
  Report Type: Spontaneous
  Country: US (occurrence: US)
  Receive Date: 20150603
  Receipt Date: 20150916
  Transmission Date: 20151125
  Serious: Yes (Hospitalization, Disabling)
  Sender: FDA-Public Use
  Company Number: US-PFIZER INC-2015181611

PATIENT
  Age: 49 Year
  Sex: Female
  Weight: 127 kg

DRUGS (9)
  1. NEURONTIN [Suspect]
     Active Substance: GABAPENTIN
     Indication: PAIN IN EXTREMITY
     Dosage: 10 MG, 2X/DAY (10 MG MORNING AND NIGHT 20 MG SAME)
     Route: 048
  2. REQUIP [Concomitant]
     Active Substance: ROPINIROLE HYDROCHLORIDE
     Indication: LIMB DISCOMFORT
     Dosage: UNK
     Dates: start: 2013
  3. OXYCODONE [Concomitant]
     Active Substance: OXYCODONE
     Dosage: 10 MG, 2X/DAY (ONE 10 MG TWICE A DAY)
     Dates: start: 2005
  4. MORPHINE SULFATE SR [Concomitant]
     Active Substance: MORPHINE SULFATE
     Dosage: UNK
  5. OXYCONTIN [Suspect]
     Active Substance: OXYCODONE HYDROCHLORIDE
     Indication: PAIN
     Dosage: 10 MG, 2X/DAY
     Dates: start: 2015
  6. NEURONTIN [Suspect]
     Active Substance: GABAPENTIN
     Indication: NEUROPATHY PERIPHERAL
     Dosage: 300 MG, 3X/DAY, (3 PILL)
     Route: 048
     Dates: start: 2010
  7. NEURONTIN [Suspect]
     Active Substance: GABAPENTIN
     Dosage: UNK
     Route: 048
  8. LISINOPRIL. [Concomitant]
     Active Substance: LISINOPRIL
     Dosage: UNK
     Dates: start: 2008
  9. OPANA ER [Concomitant]
     Active Substance: OXYMORPHONE HYDROCHLORIDE
     Dosage: UNK

REACTIONS (8)
  - Peripheral swelling [Not Recovered/Not Resolved]
  - Insomnia [Not Recovered/Not Resolved]
  - Amnesia [Unknown]
  - Pain in extremity [Unknown]
  - Physical disability [Not Recovered/Not Resolved]
  - Respiratory disorder [Unknown]
  - Drug ineffective for unapproved indication [Not Recovered/Not Resolved]
  - Arthralgia [Unknown]
